FAERS Safety Report 5808119-5 (Version None)
Quarter: 2008Q3

REPORT INFORMATION
  Report Type: 
  Country: None (occurrence: None)
  Receive Date: 20080708
  Receipt Date: 20080625
  Transmission Date: 20090109
  Serious: Yes (Hospitalization)
  Sender: FDA-Public Use
  Company Number: 08P-178-0457131-00

PATIENT
  Age: 10 Day
  Sex: Female

DRUGS (2)
  1. SYNAGIS [Suspect]
     Indication: PROPHYLAXIS
     Dosage: 100 MG (100 MG, 1 IN 1 M); INTRAMUSCULAR
     Route: 030
     Dates: start: 20080501
  2. SYNAGIS [Suspect]
     Indication: RESPIRATORY DISORDER
     Dosage: 100 MG (100 MG, 1 IN 1 M); INTRAMUSCULAR
     Route: 030
     Dates: start: 20080501

REACTIONS (3)
  - ANAEMIA [None]
  - INFECTION [None]
  - PYREXIA [None]
